FAERS Safety Report 10862556 (Version 1)
Quarter: 2015Q1

REPORT INFORMATION
  Report Type: Spontaneous
  Country: RU (occurrence: RU)
  Receive Date: 20150223
  Receipt Date: 20150223
  Transmission Date: 20150721
  Serious: Yes (Hospitalization)
  Sender: FDA-Public Use
  Company Number: RU-TEVA-542759ISR

PATIENT
  Age: 59 Year
  Sex: Male

DRUGS (2)
  1. BUDESONID EASYHALER [Suspect]
     Active Substance: BUDESONIDE
     Route: 055
  2. VENTOLIN? NEBULES [Concomitant]
     Route: 055

REACTIONS (2)
  - Cough [Recovered/Resolved]
  - Oropharyngeal pain [Recovered/Resolved]
